FAERS Safety Report 10532669 (Version 2)
Quarter: 2015Q2

REPORT INFORMATION
  Report Type: Spontaneous
  Country: GB (occurrence: GB)
  Receive Date: 20141021
  Receipt Date: 20150603
  Transmission Date: 20150821
  Serious: Yes (Hospitalization)
  Sender: FDA-Public Use
  Company Number: GB-BAUSCH-BL-2014-006690

PATIENT
  Age: 65 Year
  Sex: Male
  Weight: 94 kg

DRUGS (10)
  1. AVASTIN [Suspect]
     Active Substance: BEVACIZUMAB
     Indication: GASTRIC CANCER
     Route: 042
     Dates: start: 20120124
  2. EPIRUBICIN [Suspect]
     Active Substance: EPIRUBICIN
     Indication: GASTRIC CANCER
     Route: 042
     Dates: start: 20120124
  3. FUROSEMIDE. [Suspect]
     Active Substance: FUROSEMIDE
     Indication: GASTRIC CANCER
     Dosage: DAILY
     Route: 048
     Dates: start: 20120124
  4. CISPLATIN. [Suspect]
     Active Substance: CISPLATIN
     Indication: GASTRIC CANCER
     Route: 042
     Dates: start: 20120124
  5. LISINOPRIL. [Concomitant]
     Active Substance: LISINOPRIL
     Indication: PRODUCT USED FOR UNKNOWN INDICATION
     Dates: start: 200705
  6. ONDANSETRON [Suspect]
     Active Substance: ONDANSETRON
     Indication: GASTRIC CANCER
     Dosage: DAILY
     Route: 048
     Dates: start: 20120124
  7. SIMVASTATIN. [Concomitant]
     Active Substance: SIMVASTATIN
     Indication: PRODUCT USED FOR UNKNOWN INDICATION
     Route: 048
     Dates: start: 200503
  8. APREPITANT. [Suspect]
     Active Substance: APREPITANT
     Indication: GASTRIC CANCER
     Dosage: DAILY
     Route: 048
     Dates: start: 20120124
  9. DEXAMETHASONE. [Suspect]
     Active Substance: DEXAMETHASONE
     Indication: GASTRIC CANCER
     Dosage: DAILY
     Route: 048
     Dates: start: 20120124, end: 20120309
  10. XELODA [Suspect]
     Active Substance: CAPECITABINE
     Indication: GASTRIC CANCER
     Dosage: DAILY
     Route: 048
     Dates: start: 20120124

REACTIONS (4)
  - Abdominal sepsis [Recovered/Resolved]
  - Febrile neutropenia [Recovered/Resolved]
  - Diarrhoea [Recovered/Resolved]
  - Vomiting [Recovered/Resolved]

NARRATIVE: CASE EVENT DATE: 20120313
